FAERS Safety Report 7825712-9 (Version None)
Quarter: 2011Q4

REPORT INFORMATION
  Report Type: 
  Country: None (occurrence: None)
  Receive Date: 20111019
  Receipt Date: 20111012
  Transmission Date: 20120403
  Serious: Yes (Life-Threatening, Hospitalization)
  Sender: FDA-Public Use
  Company Number: US-CELGENEUS-163-21880-11092288

PATIENT
  Sex: Male
  Weight: 45.264 kg

DRUGS (19)
  1. GABAPENTIN [Concomitant]
     Route: 065
  2. VICODIN [Concomitant]
     Route: 065
  3. COREG [Concomitant]
     Route: 065
  4. ZOMETA [Concomitant]
     Route: 065
  5. LASIX [Concomitant]
     Route: 065
  6. PROTONIX [Concomitant]
     Route: 065
  7. LOVENOX [Concomitant]
     Route: 065
  8. PROCHLORPER [Concomitant]
     Route: 065
  9. ATIVAN [Concomitant]
     Route: 065
  10. FLONASE [Concomitant]
     Route: 065
  11. POTASSIUM CHLORIDE [Concomitant]
     Route: 065
  12. PREDNISONE [Concomitant]
     Route: 065
  13. DOXIL [Concomitant]
     Route: 041
  14. VELCADE [Suspect]
     Route: 041
  15. FLUCONAZOLE [Concomitant]
     Route: 065
  16. MEPRON [Concomitant]
     Route: 065
  17. DECADRON [Concomitant]
     Route: 065
  18. REVLIMID [Suspect]
     Indication: MULTIPLE MYELOMA
     Dosage: 25 MILLIGRAM
     Route: 048
     Dates: start: 20100927, end: 20110701
  19. ONDASETRON [Concomitant]
     Route: 065

REACTIONS (2)
  - INTERSTITIAL LUNG DISEASE [None]
  - PNEUMOCYSTIS JIROVECI PNEUMONIA [None]
